FAERS Safety Report 17841591 (Version 5)
Quarter: 2020Q3

REPORT INFORMATION
  Report Type: Spontaneous
  Country: US (occurrence: US)
  Receive Date: 20200529
  Receipt Date: 20200715
  Transmission Date: 20201103
  Serious: No
  Sender: FDA-Public Use
  Company Number: US-PFIZER INC-2020209856

PATIENT
  Age: 58 Year
  Sex: Female
  Weight: 54.43 kg

DRUGS (1)
  1. ADVIL COLD AND SINUS [Suspect]
     Active Substance: IBUPROFEN\PSEUDOEPHEDRINE HYDROCHLORIDE
     Indication: HYPERSENSITIVITY
     Dosage: 1 CAPLET, EVERY 4?6 HOURS (AS NEEDED)
     Route: 048
     Dates: start: 20200526

REACTIONS (8)
  - Poor quality product administered [Unknown]
  - Product physical issue [Unknown]
  - Pruritus [Unknown]
  - Product colour issue [Unknown]
  - Nausea [Unknown]
  - Product coating issue [Unknown]
  - Gait disturbance [Unknown]
  - Product use issue [Unknown]

NARRATIVE: CASE EVENT DATE: 20200526
